FAERS Safety Report 5923249-5 (Version None)
Quarter: 2008Q4

REPORT INFORMATION
  Report Type: 
  Country: None (occurrence: None)
  Receive Date: 20081015
  Receipt Date: 20081001
  Transmission Date: 20090506
  Serious: Yes (Death, Hospitalization)
  Sender: FDA-Public Use
  Company Number: CLOF-1000227

PATIENT
  Age: 67 Year
  Sex: Female

DRUGS (15)
  1. CLOFARABINE (CLOFARABINE) [Suspect]
     Indication: MYELODYSPLASTIC SYNDROME
     Dosage: 35 MG, QDX5, ORAL
     Route: 048
     Dates: start: 20080625, end: 20080629
  2. VORICONAZOLE (VORICONAZOLE) [Concomitant]
  3. ZOLOFT [Concomitant]
  4. GLIPIZIDE [Concomitant]
  5. CIPROFLOXACIN (CIPROFLOXACIN LACTATE) [Concomitant]
  6. VALTREX [Concomitant]
  7. CALCIUM (RIBOFLAVIN SODIUM PHOSPHATE) [Concomitant]
  8. FISH OIL (FISH OIL) [Concomitant]
  9. MAGNESIUM OXIDE (MAGNESIUM OXIDE) [Concomitant]
  10. COMPAZINE (PROCHLORPERAZINE MALEATE) [Concomitant]
  11. OXYCODONE (OXYCODONE, PARACETAMOL) [Concomitant]
  12. LANTUS [Concomitant]
  13. VITAMIN B COMPLEX (VITAMIN-B-KOMPLEX STANDARD) [Concomitant]
  14. VITAMIN D [Concomitant]
  15. FLUCONAZOLE [Concomitant]

REACTIONS (26)
  - ABDOMINAL PAIN [None]
  - ACUTE RESPIRATORY DISTRESS SYNDROME [None]
  - BILIRUBIN CONJUGATED INCREASED [None]
  - BLOOD GLUCOSE DECREASED [None]
  - BLOOD GLUCOSE INCREASED [None]
  - BLOOD PRESSURE SYSTOLIC INCREASED [None]
  - CULTURE URINE POSITIVE [None]
  - DIARRHOEA [None]
  - ENTEROCOCCAL INFECTION [None]
  - FEBRILE NEUTROPENIA [None]
  - HAEMANGIOMA OF LIVER [None]
  - HAEMATOCRIT DECREASED [None]
  - HAEMOGLOBIN DECREASED [None]
  - HYPOPERFUSION [None]
  - HYPOTENSION [None]
  - LACERATION [None]
  - LETHARGY [None]
  - MOUTH ULCERATION [None]
  - PAIN [None]
  - PLEURAL EFFUSION [None]
  - PLEURAL FIBROSIS [None]
  - PNEUMONIA [None]
  - RESPIRATORY FAILURE [None]
  - STREPTOCOCCAL SEPSIS [None]
  - SUPRAVENTRICULAR TACHYCARDIA [None]
  - THROMBOCYTOPENIA [None]
